FAERS Safety Report 20930171 (Version 1)
Quarter: 2022Q2

REPORT INFORMATION
  Report Type: Spontaneous
  Country: US (occurrence: None)
  Receive Date: 20220608
  Receipt Date: 20220608
  Transmission Date: 20220721
  Serious: No
  Sender: FDA-Public Use
  Company Number: 2022A183235

PATIENT
  Sex: Male
  Weight: 9.1 kg

DRUGS (2)
  1. SYMBICORT [Suspect]
     Active Substance: BUDESONIDE\FORMOTEROL FUMARATE DIHYDRATE
     Indication: Asthma
     Dosage: 160/4.5, 2 PUFFS, ONCE A DAY
     Route: 055
     Dates: start: 20220505
  2. BUDESONIDE\FORMOTEROL\GLYCOPYRRONIUM [Suspect]
     Active Substance: BUDESONIDE\FORMOTEROL\GLYCOPYRRONIUM
     Indication: Tracheal deviation
     Dosage: 160/9/4.8, ONE PUFF EVERY 24 HOURS
     Route: 055
     Dates: start: 202203

REACTIONS (5)
  - Weight decreased [Unknown]
  - Vomiting [Unknown]
  - Cough [Unknown]
  - Weight increased [Unknown]
  - Device use issue [Unknown]
